FAERS Safety Report 7766183 (Version 2)
Quarter: 2012Q4

REPORT INFORMATION
  Report Type: 
  Country: US (occurrence: US)
  Receive Date: 20110119
  Receipt Date: 20120928
  Transmission Date: 20130627
  Serious: Yes (Hospitalization, Other)
  Sender: FDA-Public Use
  Company Number: US-ROCHE-731089

PATIENT
  Age: 17 Year
  Sex: Female
  Weight: 59 kg

DRUGS (8)
  1. ACCUTANE [Suspect]
     Indication: ACNE
     Route: 065
     Dates: start: 1988, end: 1989
  2. ACCUTANE [Suspect]
     Route: 065
     Dates: start: 1990, end: 1992
  3. ACCUTANE [Suspect]
     Route: 065
  4. ACCUTANE [Suspect]
     Route: 065
     Dates: start: 19971201, end: 19980508
  5. ADVIL [Concomitant]
     Route: 065
  6. ALEVE [Concomitant]
     Indication: HEADACHE
     Route: 065
  7. MINOCIN [Concomitant]
     Indication: ACNE
     Dosage: DOSE: 100-200 MG.
     Route: 065
  8. ERYTHROMYCIN [Concomitant]
     Indication: ACNE
     Dosage: ERYTHROMYCIN 333 ONE BID.
     Route: 065

REACTIONS (14)
  - Colitis ulcerative [Unknown]
  - Anaemia [Unknown]
  - Inflammatory bowel disease [Unknown]
  - Depression [Unknown]
  - Large intestine polyp [Unknown]
  - Rectal polyp [Unknown]
  - Gastrointestinal injury [Unknown]
  - Irritable bowel syndrome [Unknown]
  - Obsessive-compulsive disorder [Unknown]
  - Acne [Unknown]
  - Fatigue [Unknown]
  - Scab [Unknown]
  - Cyst [Unknown]
  - Skin papilloma [Unknown]
